FAERS Safety Report 22063373 (Version 1)
Quarter: 2023Q1

REPORT INFORMATION
  Report Type: Spontaneous
  Country: DE (occurrence: DE)
  Receive Date: 20230306
  Receipt Date: 20230306
  Transmission Date: 20230418
  Serious: Yes (Other)
  Sender: FDA-Public Use
  Company Number: DE-ARISTO PHARMA-PANT-ROSU202302161

PATIENT
  Sex: Female

DRUGS (1)
  1. PANTOPRAZOLE [Interacting]
     Active Substance: PANTOPRAZOLE
     Indication: Acidosis
     Dosage: UNK (STARTED ONE DAY AGO)
     Route: 065
     Dates: start: 20230215

REACTIONS (2)
  - Myalgia [Not Recovered/Not Resolved]
  - Drug interaction [Unknown]

NARRATIVE: CASE EVENT DATE: 20230215
